FAERS Safety Report 8606065-5 (Version None)
Quarter: 2012Q3

REPORT INFORMATION
  Report Type: 
  Country: None (occurrence: None)
  Receive Date: 20120820
  Receipt Date: 20120719
  Transmission Date: 20120928
  Serious: Yes (Other)
  Sender: FDA-Public Use
  Company Number: AU-ROCHE-1101181

PATIENT
  Sex: Male

DRUGS (5)
  1. AVASTIN [Suspect]
     Indication: COLON CANCER STAGE IV
     Dates: end: 20110101
  2. OXALIPLATIN [Concomitant]
     Indication: COLON CANCER STAGE IV
     Dates: start: 20120201
  3. AVASTIN [Suspect]
     Dates: start: 20120701
  4. CAPECITABINE [Suspect]
     Indication: COLON CANCER STAGE IV
     Dates: end: 20110101
  5. CAPECITABINE [Suspect]
     Dates: start: 20120201

REACTIONS (3)
  - TOXICITY TO VARIOUS AGENTS [None]
  - DISEASE PROGRESSION [None]
  - PALMAR-PLANTAR ERYTHRODYSAESTHESIA SYNDROME [None]
